FAERS Safety Report 6305363-8 (Version None)
Quarter: 2009Q3

REPORT INFORMATION
  Report Type: 
  Country: None (occurrence: None)
  Receive Date: 20090810
  Receipt Date: 20090810
  Transmission Date: 20100115
  Serious: Yes (Other)
  Sender: FDA-Public Use
  Company Number: None

PATIENT
  Age: 39 Year
  Sex: Female
  Weight: 71.2147 kg

DRUGS (3)
  1. OXYCONTIN [Suspect]
     Indication: BACK PAIN
     Dosage: 40 MG
     Dates: start: 20090219
  2. OXYCONTIN [Suspect]
     Indication: CERVICOBRACHIAL SYNDROME
     Dosage: 40 MG
     Dates: start: 20090219
  3. OXYCONTIN [Suspect]
     Indication: FACIAL PAIN
     Dosage: 40 MG
     Dates: start: 20090219

REACTIONS (2)
  - DRUG INEFFECTIVE [None]
  - PRODUCT SUBSTITUTION ISSUE [None]
